FAERS Safety Report 14788785 (Version 1)
Quarter: 2018Q2

REPORT INFORMATION
  Report Type: Spontaneous
  Country: GB (occurrence: GB)
  Receive Date: 20180423
  Receipt Date: 20180423
  Transmission Date: 20180711
  Serious: Yes (Other)
  Sender: FDA-Public Use
  Company Number: GB-ACCORD-065868

PATIENT
  Age: 59 Year
  Sex: Male
  Weight: 89 kg

DRUGS (5)
  1. DESUNIN [Concomitant]
     Active Substance: CHOLECALCIFEROL
     Dosage: MAINTENANCE DOSE: ONE TO THREE TABLETS DAILY.
     Dates: start: 20170608, end: 20171114
  2. AMLODIPINE [Suspect]
     Active Substance: AMLODIPINE BESYLATE
     Indication: PRODUCT USED FOR UNKNOWN INDICATION
     Dates: start: 20171114
  3. BISOPROLOL [Concomitant]
     Active Substance: BISOPROLOL
     Dates: start: 20161212
  4. ALLOPURINOL. [Concomitant]
     Active Substance: ALLOPURINOL
     Dates: start: 20161212, end: 20171114
  5. ROSUVASTATIN/ROSUVASTATIN CALCIUM [Concomitant]
     Dosage: EACH NIGHT
     Dates: start: 20161212

REACTIONS (1)
  - Headache [Recovered/Resolved]

NARRATIVE: CASE EVENT DATE: 20171114
